FAERS Safety Report 4875529-2 (Version None)
Quarter: 2006Q1

REPORT INFORMATION
  Report Type: 
  Country: None (occurrence: None)
  Receive Date: 20060103
  Receipt Date: 20051223
  Transmission Date: 20060701
  Serious: Yes (Hospitalization)
  Sender: FDA-Public Use
  Company Number: 200511007BVD

PATIENT
  Age: 76 Year
  Sex: Female
  Weight: 68 kg

DRUGS (24)
  1. GAMUNEX [Suspect]
     Indication: IDIOPATHIC THROMBOCYTOPENIC PURPURA
     Dosage: SEE IMAGE
     Route: 042
     Dates: start: 20050711
  2. GAMUNEX [Suspect]
     Indication: IDIOPATHIC THROMBOCYTOPENIC PURPURA
     Dosage: SEE IMAGE
     Route: 042
     Dates: start: 20050711
  3. GAMUNEX [Suspect]
     Indication: IDIOPATHIC THROMBOCYTOPENIC PURPURA
     Dosage: SEE IMAGE
     Route: 042
     Dates: start: 20050712
  4. GAMUNEX [Suspect]
     Indication: IDIOPATHIC THROMBOCYTOPENIC PURPURA
     Dosage: SEE IMAGE
     Route: 042
     Dates: start: 20050712
  5. GAMUNEX [Suspect]
     Indication: IDIOPATHIC THROMBOCYTOPENIC PURPURA
     Dosage: SEE IMAGE
     Route: 042
     Dates: start: 20050712
  6. GAMUNEX [Suspect]
     Indication: IDIOPATHIC THROMBOCYTOPENIC PURPURA
     Dosage: SEE IMAGE
     Route: 042
     Dates: start: 20050713
  7. GAMUNEX [Suspect]
     Indication: IDIOPATHIC THROMBOCYTOPENIC PURPURA
     Dosage: SEE IMAGE
     Route: 042
     Dates: start: 20050713
  8. GAMUNEX [Suspect]
     Indication: IDIOPATHIC THROMBOCYTOPENIC PURPURA
     Dosage: SEE IMAGE
     Route: 042
     Dates: start: 20050714
  9. GAMUNEX [Suspect]
     Indication: IDIOPATHIC THROMBOCYTOPENIC PURPURA
     Dosage: SEE IMAGE
     Route: 042
     Dates: start: 20050714
  10. GAMUNEX [Suspect]
     Indication: IDIOPATHIC THROMBOCYTOPENIC PURPURA
     Dosage: SEE IMAGE
     Route: 042
     Dates: start: 20050715
  11. GAMUNEX [Suspect]
     Indication: IDIOPATHIC THROMBOCYTOPENIC PURPURA
     Dosage: SEE IMAGE
     Route: 042
     Dates: start: 20050715
  12. DECORTIN [Concomitant]
  13. THEOPHYLLINE [Concomitant]
  14. CORIFEO [Concomitant]
  15. MCP [Concomitant]
  16. TRAMAL [Concomitant]
  17. PENTAERYTHRITOL TETRANITRATE [Concomitant]
  18. NEXIUM [Concomitant]
  19. ANTRA [Concomitant]
  20. GAMUNEX [Suspect]
  21. GAMUNEX [Suspect]
  22. GAMUNEX [Suspect]
  23. GAMUNEX [Suspect]
  24. GAMUNEX [Suspect]

REACTIONS (4)
  - ACUTE CORONARY SYNDROME [None]
  - BLOOD LACTATE DEHYDROGENASE INCREASED [None]
  - INFECTION [None]
  - PYREXIA [None]
